FAERS Safety Report 17999238 (Version 1)
Quarter: 2020Q3

REPORT INFORMATION
  Report Type: Spontaneous
  Country: US (occurrence: US)
  Receive Date: 20200708
  Receipt Date: 20200708
  Transmission Date: 20201103
  Serious: Yes (Death)
  Sender: FDA-Public Use
  Company Number: None

PATIENT
  Age: 65 Year
  Sex: Male

DRUGS (11)
  1. ALBUTEROL HFA [Concomitant]
     Active Substance: ALBUTEROL SULFATE
  2. ZOFRAN [Concomitant]
     Active Substance: ONDANSETRON HYDROCHLORIDE
  3. PREDNISONE. [Concomitant]
     Active Substance: PREDNISONE
  4. ASPIRIN. [Concomitant]
     Active Substance: ASPIRIN
  5. TRAMADOL. [Concomitant]
     Active Substance: TRAMADOL
  6. MELOXICAM. [Concomitant]
     Active Substance: MELOXICAM
  7. MIRTAZAPINE. [Concomitant]
     Active Substance: MIRTAZAPINE
  8. ATROVASTATIN [Concomitant]
     Active Substance: ATORVASTATIN CALCIUM
  9. OPSUMIT [Suspect]
     Active Substance: MACITENTAN
     Indication: PULMONARY HYPERTENSION
     Route: 048
     Dates: start: 201809, end: 202007
  10. REMODULIN [Concomitant]
     Active Substance: TREPROSTINIL
  11. SILDENAFIL. [Concomitant]
     Active Substance: SILDENAFIL

REACTIONS (1)
  - Acute respiratory failure [None]

NARRATIVE: CASE EVENT DATE: 20200705
